FAERS Safety Report 14638956 (Version 1)
Quarter: 2018Q1

REPORT INFORMATION
  Report Type: Spontaneous
  Country: JP (occurrence: JP)
  Receive Date: 20180315
  Receipt Date: 20180315
  Transmission Date: 20180509
  Serious: Yes (Other)
  Sender: FDA-Public Use
  Company Number: JP-AMGEN-JPNSP2018035279

PATIENT
  Age: 40 Year
  Sex: Female

DRUGS (3)
  1. GRAN [Suspect]
     Active Substance: FILGRASTIM
     Indication: AGRANULOCYTOSIS
     Dosage: UNK
     Route: 058
  2. THIAMAZOLE [Suspect]
     Active Substance: METHIMAZOLE
     Indication: BASEDOW^S DISEASE
     Dosage: UNK
     Route: 048
  3. G-LASTA [Suspect]
     Active Substance: PEGFILGRASTIM
     Indication: AGRANULOCYTOSIS
     Dosage: UNK
     Route: 058

REACTIONS (2)
  - Histiocytosis haematophagic [Unknown]
  - Still^s disease [Unknown]
